FAERS Safety Report 7783480-3 (Version None)
Quarter: 2011Q3

REPORT INFORMATION
  Report Type: 
  Country: None (occurrence: None)
  Receive Date: 20110928
  Receipt Date: 20110917
  Transmission Date: 20111222
  Serious: Yes (Hospitalization)
  Sender: FDA-Public Use
  Company Number: US-PFIZER INC-2011221729

PATIENT

DRUGS (2)
  1. SORAFENIB [Suspect]
     Indication: THYROID CANCER
  2. TORISEL [Suspect]
     Indication: THYROID CANCER

REACTIONS (1)
  - MUSCULAR WEAKNESS [None]
